FAERS Safety Report 9012215 (Version 1)
Quarter: 2013Q1

REPORT INFORMATION
  Report Type: Spontaneous
  Country: AU (occurrence: AU)
  Receive Date: 20130114
  Receipt Date: 20130114
  Transmission Date: 20140127
  Serious: Yes (Other)
  Sender: FDA-Public Use
  Company Number: AU-ASTRAZENECA-2013SE01016

PATIENT
  Age: 49 Year
  Sex: 0

DRUGS (2)
  1. ATACAND PLUS [Suspect]
     Dosage: 16/12.5 MG, 1 DOSE UNSPECIFIED DAILY
     Route: 048
  2. QUILONUM - SLOW RELEASE [Interacting]
     Route: 048

REACTIONS (4)
  - Drug interaction [Unknown]
  - Toxicity to various agents [Unknown]
  - Renal failure acute [Recovered/Resolved]
  - Rash macular [Recovered/Resolved]
